FAERS Safety Report 9604563 (Version 1)
Quarter: 2013Q4

REPORT INFORMATION
  Report Type: Spontaneous
  Country: US (occurrence: US)
  Receive Date: 20131008
  Receipt Date: 20131008
  Transmission Date: 20140711
  Serious: Yes (Other)
  Sender: FDA-Public Use
  Company Number: US-UCBSA-099703

PATIENT
  Age: 10 Year
  Sex: Male

DRUGS (18)
  1. LACOSAMIDE [Suspect]
     Indication: STATUS EPILEPTICUS
     Dosage: 200 MG/DAY
  2. LEVETIRACETAM [Suspect]
     Indication: STATUS EPILEPTICUS
     Dosage: 1,000 MG/DAY
  3. LEVETIRACETAM [Suspect]
     Indication: STATUS EPILEPTICUS
     Dosage: 20 MG/KG
  4. LEVETIRACETAM [Suspect]
     Indication: STATUS EPILEPTICUS
     Dosage: 2000 MG DAILY
  5. LEVETIRACETAM [Suspect]
     Indication: STATUS EPILEPTICUS
     Dosage: 2,500 MG/DAY
  6. LAMOTRIGINE [Concomitant]
     Indication: GRAND MAL CONVULSION
     Dosage: 200 MG/DAY
  7. CLONAZEPAM [Concomitant]
     Indication: STATUS EPILEPTICUS
     Dosage: 0.5 MG PRN
  8. FOSPHENYTOIN [Concomitant]
     Indication: GRAND MAL CONVULSION
     Dosage: 20 MG/KG
  9. LAMOTRIGINE [Concomitant]
     Indication: GRAND MAL CONVULSION
     Dosage: 200 MG/DAY
  10. MIDAZOLAM [Concomitant]
     Indication: STATUS EPILEPTICUS
     Dosage: 0.2 MG/KG/H
  11. PENTOBARBITAL [Concomitant]
     Indication: STATUS EPILEPTICUS
     Dosage: 4 MG/KG/H
  12. PENTOBARBITAL [Concomitant]
     Indication: STATUS EPILEPTICUS
     Dosage: 1 MG/KG/H
  13. PENTOBARBITAL [Concomitant]
     Indication: STATUS EPILEPTICUS
     Dosage: 5 MG/KG/H
  14. DOPAMINE [Concomitant]
  15. EPINEPHRINE [Concomitant]
  16. CLOBAZAM [Concomitant]
     Dosage: 20 MG/DAY
  17. DIAZEPAM [Concomitant]
     Indication: GRAND MAL CONVULSION
     Dosage: 10 MG
     Route: 054
  18. LORAZEPAM [Concomitant]
     Indication: GRAND MAL CONVULSION
     Dosage: 6 MG
     Route: 042

REACTIONS (8)
  - Staphylococcal infection [Unknown]
  - Duodenal ulcer [Unknown]
  - Haemorrhage [Unknown]
  - Haematuria [Recovered/Resolved]
  - Hypertension [Recovering/Resolving]
  - Hypokalaemia [Unknown]
  - Hypernatraemia [Unknown]
  - Drug ineffective for unapproved indication [Unknown]
